FAERS Safety Report 5362564-3 (Version None)
Quarter: 2007Q2

REPORT INFORMATION
  Report Type: 
  Country: None (occurrence: None)
  Receive Date: 20070619
  Receipt Date: 20070613
  Transmission Date: 20071010
  Serious: Yes (Other)
  Sender: FDA-Public Use
  Company Number: IN-BOEHRINGER INGELHEIM PHARMACEUTICALS, INC.-2007-DE-03465GD

PATIENT
  Sex: Female

DRUGS (4)
  1. VIRAMUNE [Suspect]
     Indication: HUMAN IMMUNODEFICIENCY VIRUS TRANSMISSION
     Route: 048
  2. VIRAMUNE [Suspect]
     Indication: PROPHYLAXIS
  3. ZIDOVUDINE [Suspect]
     Indication: HUMAN IMMUNODEFICIENCY VIRUS TRANSMISSION
     Dosage: 300 MG TWICE DAILY BEGINNING AT 36-WEEKS GESTATION, ONE 300 MG DOSE AT THE ONSET OF LABOR AND 300 MG
     Route: 048
  4. ZIDOVUDINE [Suspect]
     Indication: PROPHYLAXIS

REACTIONS (1)
  - STILLBIRTH [None]
